FAERS Safety Report 11340719 (Version 1)
Quarter: 2015Q3

REPORT INFORMATION
  Report Type: Report from Study
  Country: NL (occurrence: NL)
  Receive Date: 20150805
  Receipt Date: 20150805
  Transmission Date: 20151125
  Serious: Yes (Other)
  Sender: FDA-Public Use
  Company Number: NL-AMGEN-NLDSL2015076714

PATIENT
  Age: 86 Year
  Sex: Male

DRUGS (12)
  1. XGEVA [Suspect]
     Active Substance: DENOSUMAB
     Indication: METASTASES TO BONE
     Dosage: 120 MG, Q4WK
     Route: 058
     Dates: start: 20141015
  2. BUPRENORFINE MYLAN [Concomitant]
     Dosage: 5 UNK, UNK
     Dates: start: 20150323
  3. METOCLOPRAMIDE. [Concomitant]
     Active Substance: METOCLOPRAMIDE
     Dosage: 10 MG, QD
     Dates: start: 20150210
  4. METFORMIN [Concomitant]
     Active Substance: METFORMIN HYDROCHLORIDE
     Dosage: UNK UNK, QD
     Dates: start: 20150227
  5. MACROGOL [Concomitant]
     Active Substance: POLYETHYLENE GLYCOLS
     Dosage: 10 MG, UNK
     Dates: start: 20150320
  6. OXYCONTIN [Concomitant]
     Active Substance: OXYCODONE HYDROCHLORIDE
     Dosage: 10 MG, UNK
  7. ABIRATERONE [Concomitant]
     Active Substance: ABIRATERONE
  8. CALCIUMCARBIMIDUM [Concomitant]
     Dosage: 500 MG, UNK
     Dates: start: 20150302
  9. PROPRANOLOL [Concomitant]
     Active Substance: PROPRANOLOL\PROPRANOLOL HYDROCHLORIDE
     Dosage: 10 MG, QD
     Dates: start: 20150227
  10. GLIMEPIRIDE. [Concomitant]
     Active Substance: GLIMEPIRIDE
     Dosage: 1 MG, QD
     Dates: start: 20150227
  11. GOSERELINE [Concomitant]
     Active Substance: GOSERELIN
     Dosage: 10.8 MG, UNK
     Dates: start: 20150220
  12. FENTANYL. [Concomitant]
     Active Substance: FENTANYL
     Dosage: 100 MUG, QD
     Route: 060
     Dates: start: 20150211

REACTIONS (5)
  - Abscess [Unknown]
  - Delirium [Unknown]
  - Urinary tract infection [Recovering/Resolving]
  - Tooth extraction [Unknown]
  - Pain [Unknown]

NARRATIVE: CASE EVENT DATE: 20150218
